FAERS Safety Report 8155168-0 (Version None)
Quarter: 2012Q1

REPORT INFORMATION
  Report Type: 
  Country: None (occurrence: None)
  Receive Date: 20120221
  Receipt Date: 20120213
  Transmission Date: 20120608
  Serious: Yes (Disabling, Other)
  Sender: FDA-Public Use
  Company Number: US-ASTRAZENECA-2012SE09986

PATIENT
  Age: 74 Year
  Sex: Female

DRUGS (2)
  1. PROTONIX [Concomitant]
  2. NEXIUM [Suspect]
     Route: 048

REACTIONS (3)
  - DYSPEPSIA [None]
  - CORONARY ARTERY DISEASE [None]
  - NERVOUS SYSTEM DISORDER [None]
